FAERS Safety Report 17616814 (Version 4)
Quarter: 2020Q2

REPORT INFORMATION
  Report Type: Report from Study
  Country: KR (occurrence: KR)
  Receive Date: 20200402
  Receipt Date: 20200522
  Transmission Date: 20200713
  Serious: Yes (Hospitalization, Other)
  Sender: FDA-Public Use
  Company Number: KR-PFIZER INC-2020124831

PATIENT
  Age: 61 Year
  Sex: Female
  Weight: 53.3 kg

DRUGS (3)
  1. TOFACITINIB CITRATE [Suspect]
     Active Substance: TOFACITINIB CITRATE
     Indication: COLITIS ULCERATIVE
     Dosage: 2X/DAY
     Route: 048
     Dates: start: 20180607, end: 20200311
  2. NORVASC [Concomitant]
     Active Substance: AMLODIPINE BESYLATE
     Indication: HYPERTENSION
     Dosage: 5 MG, 1X/DAY
     Route: 048
     Dates: start: 20190903
  3. ASACOL DR [Concomitant]
     Indication: COLITIS ULCERATIVE
     Dosage: 1200 MG, 2X/DAY
     Route: 048
     Dates: start: 20171212

REACTIONS (1)
  - Diffuse large B-cell lymphoma [Unknown]

NARRATIVE: CASE EVENT DATE: 20200312
